FAERS Safety Report 22157262 (Version 1)
Quarter: 2023Q1

REPORT INFORMATION
  Report Type: Report from Study
  Country: DE (occurrence: DE)
  Receive Date: 20230330
  Receipt Date: 20230330
  Transmission Date: 20230418
  Serious: Yes (Other)
  Sender: FDA-Public Use
  Company Number: DE-JNJFOC-20230371100

PATIENT

DRUGS (1)
  1. CONCERTA [Suspect]
     Active Substance: METHYLPHENIDATE HYDROCHLORIDE
     Indication: Product used for unknown indication
     Route: 065

REACTIONS (19)
  - Suicide attempt [Unknown]
  - Electrocardiogram QT prolonged [Unknown]
  - Seizure [Unknown]
  - Hallucination [Unknown]
  - Personality change [Unknown]
  - Headache [Unknown]
  - Tachycardia [Unknown]
  - Intentional overdose [Unknown]
  - Nausea [Unknown]
  - Vomiting [Unknown]
  - Abdominal pain [Unknown]
  - Weight decreased [Unknown]
  - Dizziness [Unknown]
  - Toxicity to various agents [Unknown]
  - Decreased appetite [Unknown]
  - Agitation [Unknown]
  - Feeling jittery [Unknown]
  - Mydriasis [Unknown]
  - Vision blurred [Unknown]
